FAERS Safety Report 7274999-2 (Version None)
Quarter: 2011Q1

REPORT INFORMATION
  Report Type: 
  Country: None (occurrence: None)
  Receive Date: 20110204
  Receipt Date: 20110201
  Transmission Date: 20110831
  Serious: Yes (Life-Threatening, Hospitalization, Disabling, Other)
  Sender: FDA-Public Use
  Company Number: IE-PFIZER INC-2010139329

PATIENT
  Age: 57 Year
  Sex: Female

DRUGS (2)
  1. TOVIAZ [Suspect]
     Indication: HYPERTONIC BLADDER
     Dosage: 4 MG, UNK
     Route: 048
  2. LYRICA [Concomitant]

REACTIONS (10)
  - LETHARGY [None]
  - HEPATOMEGALY [None]
  - NORMOCHROMIC NORMOCYTIC ANAEMIA [None]
  - HEADACHE [None]
  - IGA NEPHROPATHY [None]
  - NEPHROTIC SYNDROME [None]
  - ANTINUCLEAR ANTIBODY POSITIVE [None]
  - LYMPHOMA [None]
  - ASTHENIA [None]
  - HYPERTENSION [None]
